FAERS Safety Report 16256967 (Version 1)
Quarter: 2019Q2

REPORT INFORMATION
  Report Type: Spontaneous
  Country: US (occurrence: US)
  Receive Date: 20190430
  Receipt Date: 20190430
  Transmission Date: 20190711
  Serious: Yes (Other)
  Sender: FDA-Public Use
  Company Number: US-BAUSCH-BL-2019-012533

PATIENT
  Sex: Female

DRUGS (2)
  1. XIFAXAN [Suspect]
     Active Substance: RIFAXIMIN
     Indication: CLOSTRIDIUM DIFFICILE INFECTION
     Route: 048
  2. XIFAXAN [Suspect]
     Active Substance: RIFAXIMIN
     Indication: PRODUCT USE IN UNAPPROVED INDICATION

REACTIONS (3)
  - Cellulitis [Unknown]
  - Product use in unapproved indication [Unknown]
  - Pyrexia [Unknown]
